FAERS Safety Report 5759458-8 (Version None)
Quarter: 2008Q2

REPORT INFORMATION
  Report Type: 
  Country: None (occurrence: None)
  Receive Date: 20080604
  Receipt Date: 20080604
  Transmission Date: 20081010
  Serious: Yes (Disabling)
  Sender: FDA-Public Use
  Company Number: None

PATIENT
  Age: 54 Year
  Sex: Female
  Weight: 122.4712 kg

DRUGS (2)
  1. RISPERDAL [Suspect]
     Dosage: 1 MG 1AM, 2PM
     Dates: start: 20080224
  2. FLUOXETINE [Suspect]
     Dosage: 10 MG 1 AM
     Dates: start: 20080225

REACTIONS (2)
  - CONTRAINDICATION TO MEDICAL TREATMENT [None]
  - MALAISE [None]
